FAERS Safety Report 15677223 (Version 1)
Quarter: 2018Q4

REPORT INFORMATION
  Report Type: Spontaneous
  Country: CA (occurrence: CA)
  Receive Date: 20181130
  Receipt Date: 20181130
  Transmission Date: 20190205
  Serious: Yes (Death)
  Sender: FDA-Public Use
  Company Number: CA-PFIZER INC-2018058661

PATIENT
  Age: 4 Month
  Sex: Male

DRUGS (4)
  1. RAPAMUNE [Suspect]
     Active Substance: SIROLIMUS
     Dosage: 0.4 ML, DAILY FOR 7 DAYS
  2. RAPAMUNE [Suspect]
     Active Substance: SIROLIMUS
     Dosage: 0.46ML, DAILY GOING FOWARD
  3. RAPAMUNE [Suspect]
     Active Substance: SIROLIMUS
     Indication: SEIZURE
     Dosage: 0.2 ML, DAILY FOR 7 DAYS
     Dates: start: 20180509
  4. RAPAMUNE [Suspect]
     Active Substance: SIROLIMUS
     Dosage: 0.6 ML, DAILY

REACTIONS (4)
  - Product use issue [Unknown]
  - Death [Fatal]
  - Medication error [Unknown]
  - Product use in unapproved indication [Unknown]

NARRATIVE: CASE EVENT DATE: 20180509
